FAERS Safety Report 10605739 (Version 1)
Quarter: 2014Q4

REPORT INFORMATION
  Report Type: Spontaneous
  Country: US (occurrence: US)
  Receive Date: 20141125
  Receipt Date: 20141125
  Transmission Date: 20150529
  Serious: Yes (Other)
  Sender: FDA-Public Use
  Company Number: US-BRISTOL-MYERS SQUIBB COMPANY-21613526

PATIENT
  Age: 64 Year
  Sex: Female
  Weight: 84.8 kg

DRUGS (10)
  1. METFORMIN HCL [Suspect]
     Active Substance: METFORMIN HYDROCHLORIDE
  2. QUINAPRIL [Concomitant]
     Active Substance: QUINAPRIL\QUINAPRIL HYDROCHLORIDE
     Indication: BLOOD PRESSURE
  3. FISH OIL [Concomitant]
     Active Substance: FISH OIL
  4. CARVEDILOL. [Concomitant]
     Active Substance: CARVEDILOL
  5. SIMVASTATIN. [Concomitant]
     Active Substance: SIMVASTATIN
  6. ASPIRIN. [Concomitant]
     Active Substance: ASPIRIN
  7. LANTUS [Suspect]
     Active Substance: INSULIN GLARGINE
  8. NOVOLOG [Suspect]
     Active Substance: INSULIN ASPART
  9. FARXIGA [Suspect]
     Active Substance: DAPAGLIFLOZIN PROPANEDIOL
     Indication: DIABETES MELLITUS
  10. RALOXIFENE [Concomitant]
     Active Substance: RALOXIFENE

REACTIONS (6)
  - Vision blurred [Unknown]
  - Mental impairment [Unknown]
  - Anxiety [Unknown]
  - Blood glucose decreased [Unknown]
  - Blood pressure fluctuation [Unknown]
  - Decreased appetite [Unknown]
